FAERS Safety Report 18611721 (Version 1)
Quarter: 2020Q4

REPORT INFORMATION
  Report Type: Spontaneous
  Country: US (occurrence: US)
  Receive Date: 20201214
  Receipt Date: 20201214
  Transmission Date: 20210114
  Serious: No
  Sender: FDA-Public Use
  Company Number: None

PATIENT
  Age: 36 Year
  Weight: 108.41 kg

DRUGS (1)
  1. LEVOTHYROXINE 100MG [Suspect]
     Active Substance: LEVOTHYROXINE
     Indication: AUTOIMMUNE THYROIDITIS
     Route: 048
     Dates: start: 20190501, end: 20190612

REACTIONS (4)
  - Drug ineffective [None]
  - Goitre [None]
  - Blood thyroid stimulating hormone abnormal [None]
  - Thyroiditis acute [None]

NARRATIVE: CASE EVENT DATE: 20190501
